FAERS Safety Report 21335640 (Version 3)
Quarter: 2022Q4

REPORT INFORMATION
  Report Type: Report from Study
  Country: US (occurrence: US)
  Receive Date: 20220915
  Receipt Date: 20221102
  Transmission Date: 20230112
  Serious: No
  Sender: FDA-Public Use
  Company Number: US-NOVARTISTESTPH-NVSC2022US208150

PATIENT
  Sex: Male

DRUGS (3)
  1. TABRECTA [Suspect]
     Active Substance: CAPMATINIB
     Indication: Product used for unknown indication
     Dosage: 600 MG, QD (1X200 MG PILL IN THE MORNING AND 2X200 MG PILLS AT NIGHT)
     Route: 065
  2. WELLBUTRIN [Concomitant]
     Active Substance: BUPROPION HYDROCHLORIDE
     Indication: Product used for unknown indication
     Dosage: 150 MG, QD
     Route: 065
  3. CRESTOR [Concomitant]
     Active Substance: ROSUVASTATIN CALCIUM
     Indication: Product used for unknown indication
     Dosage: UNK SMALLEST DOSE, QD
     Route: 065

REACTIONS (7)
  - Dyspnoea [Unknown]
  - Middle insomnia [Unknown]
  - Skin atrophy [Unknown]
  - Scratch [Unknown]
  - Skin discolouration [Unknown]
  - Pruritus [Unknown]
  - Off label use [Unknown]
